FAERS Safety Report 8290061-4 (Version None)
Quarter: 2012Q2

REPORT INFORMATION
  Report Type: 
  Country: None (occurrence: None)
  Receive Date: 20120417
  Receipt Date: 20120403
  Transmission Date: 20120825
  Serious: Yes (Other)
  Sender: FDA-Public Use
  Company Number: US-MYLANLABS-2012S1007470

PATIENT
  Age: 50 Year
  Sex: Male

DRUGS (4)
  1. VALGANCICLOVIR [Concomitant]
     Indication: CYTOMEGALOVIRUS INFECTION
     Route: 048
  2. BUDESONIDE [Suspect]
     Indication: GASTROENTERITIS EOSINOPHILIC
     Route: 048
  3. MONTELUKAST [Concomitant]
     Indication: GASTROENTERITIS EOSINOPHILIC
     Route: 065
  4. SODIUM CROMOGLICATE [Concomitant]
     Indication: GASTROENTERITIS EOSINOPHILIC
     Route: 065

REACTIONS (2)
  - ENTERITIS INFECTIOUS [None]
  - ISOSPORIASIS [None]
